FAERS Safety Report 14964056 (Version 2)
Quarter: 2018Q3

REPORT INFORMATION
  Report Type: Report from Study
  Country: CA (occurrence: CA)
  Receive Date: 20180601
  Receipt Date: 20180702
  Transmission Date: 20181010
  Serious: Yes (Hospitalization)
  Sender: FDA-Public Use
  Company Number: CA-SA-2018SA140712

PATIENT
  Sex: Female
  Weight: 86.18 kg

DRUGS (5)
  1. BUSPIRONE [Concomitant]
     Active Substance: BUSPIRONE HYDROCHLORIDE
     Dosage: 10 MG
     Route: 048
     Dates: start: 201805
  2. ATIVAN [Concomitant]
     Active Substance: LORAZEPAM
     Dosage: 1 DF, BID
     Route: 048
     Dates: start: 201805
  3. EFFEXOR [Concomitant]
     Active Substance: VENLAFAXINE HYDROCHLORIDE
     Dosage: 112.5 MG 3 CAPS DAILY
     Route: 048
     Dates: start: 201805
  4. MIRTAZEPINE TEVA [Concomitant]
     Active Substance: MIRTAZAPINE
     Dosage: 130 MG
     Route: 048
  5. TERIFLUNOMIDE [Suspect]
     Active Substance: TERIFLUNOMIDE
     Indication: RELAPSING-REMITTING MULTIPLE SCLEROSIS
     Dosage: 14 MG, QD
     Route: 048
     Dates: start: 20171117

REACTIONS (2)
  - Muscular weakness [Recovered/Resolved]
  - Cystitis [Recovered/Resolved]

NARRATIVE: CASE EVENT DATE: 201805
